FAERS Safety Report 7271612-5 (Version None)
Quarter: 2011Q1

REPORT INFORMATION
  Report Type: 
  Country: None (occurrence: None)
  Receive Date: 20110203
  Receipt Date: 20110125
  Transmission Date: 20110831
  Serious: Yes (Hospitalization, Other)
  Sender: FDA-Public Use
  Company Number: CH-JNJFOC-20110106568

PATIENT
  Age: 73 Year
  Sex: Male

DRUGS (6)
  1. HALDOL [Suspect]
     Route: 048
  2. PSYCHOPAX [Suspect]
     Indication: PRODUCT USED FOR UNKNOWN INDICATION
     Dosage: UPTO 36 DROPS PER DAY
     Route: 048
  3. HALDOL [Suspect]
     Indication: PRODUCT USED FOR UNKNOWN INDICATION
     Route: 048
  4. HALDOL [Suspect]
     Route: 048
  5. HALDOL [Suspect]
     Route: 048
  6. HALDOL [Suspect]
     Route: 048

REACTIONS (2)
  - FALL [None]
  - EPILEPSY [None]
